FAERS Safety Report 5954829-9 (Version None)
Quarter: 2008Q4

REPORT INFORMATION
  Report Type: 
  Country: None (occurrence: None)
  Receive Date: 20081117
  Receipt Date: 20081107
  Transmission Date: 20090506
  Serious: Yes (Death, Hospitalization)
  Sender: FDA-Public Use
  Company Number: JP-AMGEN-US318834

PATIENT
  Age: 41 Year
  Sex: Female

DRUGS (4)
  1. ENBREL [Suspect]
     Indication: RHEUMATOID ARTHRITIS
     Dosage: NOT SPECIFIED
     Route: 058
     Dates: end: 20081001
  2. TACROLIMUS [Concomitant]
     Dosage: DOSE AND FREQUENCY NOT SPECIFIED
     Route: 048
  3. RHEUMATREX [Concomitant]
     Dosage: DOSE AND FREQUENCY NOT PROVIDED
     Route: 048
  4. PREDONINE [Concomitant]
     Dosage: TABLET; DOSE AND FREQUENCY NOT SPECIFIED
     Route: 048

REACTIONS (5)
  - DEATH [None]
  - LOSS OF CONSCIOUSNESS [None]
  - MALAISE [None]
  - RESPIRATORY ARREST [None]
  - SEPTIC SHOCK [None]
